FAERS Safety Report 26050575 (Version 1)
Quarter: 2025Q4

REPORT INFORMATION
  Report Type: Spontaneous
  Country: US (occurrence: US)
  Receive Date: 20251116
  Receipt Date: 20251116
  Transmission Date: 20260118
  Serious: No
  Sender: BIOGEN
  Company Number: US-BIOGEN-2089167

PATIENT
  Age: 44 Year
  Sex: Female

DRUGS (12)
  1. PLEGRIDY [Suspect]
     Active Substance: PEGINTERFERON BETA-1A
     Indication: Product used for unknown indication
  2. PLEGRIDY [Suspect]
     Active Substance: PEGINTERFERON BETA-1A
  3. PLEGRIDY [Suspect]
     Active Substance: PEGINTERFERON BETA-1A
  4. PLEGRIDY [Suspect]
     Active Substance: PEGINTERFERON BETA-1A
  5. PLEGRIDY [Suspect]
     Active Substance: PEGINTERFERON BETA-1A
  6. PLEGRIDY [Suspect]
     Active Substance: PEGINTERFERON BETA-1A
  7. ELETRIPTAN [Concomitant]
     Active Substance: ELETRIPTAN
     Indication: Product used for unknown indication
  8. OCREVUS [Concomitant]
     Active Substance: OCRELIZUMAB
     Indication: Product used for unknown indication
  9. TYLENOL [Concomitant]
     Active Substance: ACETAMINOPHEN
     Indication: Product used for unknown indication
  10. BENADRYL [Concomitant]
     Active Substance: DIPHENHYDRAMINE HYDROCHLORIDE
     Indication: Product used for unknown indication
  11. SOLU-MEDROL [Concomitant]
     Active Substance: METHYLPREDNISOLONE SODIUM SUCCINATE
     Indication: Product used for unknown indication
  12. EXEMESTANE [Concomitant]
     Active Substance: EXEMESTANE
     Indication: Product used for unknown indication

REACTIONS (3)
  - Somnolence [Unknown]
  - Insomnia [Unknown]
  - Depressed mood [Unknown]
